FAERS Safety Report 9715358 (Version 2)
Quarter: 2013Q4

REPORT INFORMATION
  Report Type: Report from Study
  Country: CA (occurrence: CA)
  Receive Date: 20131127
  Receipt Date: 20131203
  Transmission Date: 20140711
  Serious: Yes (Other)
  Sender: FDA-Public Use
  Company Number: CA-ROCHE-1309065

PATIENT
  Age: 66 Year
  Sex: Male

DRUGS (2)
  1. RANIBIZUMAB [Suspect]
     Indication: AGE-RELATED MACULAR DEGENERATION
     Route: 050
     Dates: start: 201308
  2. RANIBIZUMAB [Suspect]
     Route: 050
     Dates: start: 20131111

REACTIONS (2)
  - Vitreous opacities [Not Recovered/Not Resolved]
  - Visual acuity reduced [Not Recovered/Not Resolved]
